FAERS Safety Report 5401077-7 (Version None)
Quarter: 2007Q3

REPORT INFORMATION
  Report Type: 
  Country: None (occurrence: None)
  Receive Date: 20070731
  Receipt Date: 20070720
  Transmission Date: 20080115
  Serious: Yes (Other)
  Sender: FDA-Public Use
  Company Number: TW-JNJFOC-20070704802

PATIENT
  Age: 31 Year
  Sex: Male

DRUGS (1)
  1. RISPERIDONE [Suspect]
     Indication: SCHIZOPHRENIA, PARANOID TYPE
     Dosage: 4-6 MG PER DAY, 1 YEAR AGO

REACTIONS (3)
  - INTENTIONAL OVERDOSE [None]
  - OBSESSIVE-COMPULSIVE DISORDER [None]
  - SUICIDE ATTEMPT [None]
